FAERS Safety Report 7455501-9 (Version None)
Quarter: 2011Q2

REPORT INFORMATION
  Report Type: 
  Country: None (occurrence: None)
  Receive Date: 20110503
  Receipt Date: 20110429
  Transmission Date: 20111010
  Serious: Yes (Hospitalization)
  Sender: FDA-Public Use
  Company Number: DE-ABBOTT-11P-062-0722744-00

PATIENT
  Sex: Female

DRUGS (4)
  1. METHOTREXAT [Concomitant]
     Indication: RHEUMATOID ARTHRITIS
  2. HUMIRA [Suspect]
     Dates: start: 20110404
  3. CORTISONE [Concomitant]
     Indication: RHEUMATOID ARTHRITIS
  4. HUMIRA [Suspect]
     Indication: RHEUMATOID ARTHRITIS
     Route: 058
     Dates: start: 20071002, end: 20110131

REACTIONS (4)
  - SKIN INFECTION [None]
  - SPINAL DISORDER [None]
  - INTERVERTEBRAL DISC DISPLACEMENT [None]
  - OEDEMA PERIPHERAL [None]
